FAERS Safety Report 23159016 (Version 1)
Quarter: 2023Q4

REPORT INFORMATION
  Report Type: Spontaneous
  Country: US (occurrence: None)
  Receive Date: 20231107
  Receipt Date: 20231107
  Transmission Date: 20240109
  Serious: Yes (Life-Threatening, Disabling)
  Sender: FDA-Public Use
  Company Number: None

PATIENT
  Age: 36 Year
  Sex: Female
  Weight: 92.25 kg

DRUGS (10)
  1. MONTELUKAST [Suspect]
     Active Substance: MONTELUKAST SODIUM
     Indication: Mycotic allergy
     Dosage: OTHER QUANTITY : 1 TABLET(S);?FREQUENCY : AT BEDTIME;?
     Route: 048
     Dates: start: 20230513, end: 20231020
  2. MONTELUKAST [Suspect]
     Active Substance: MONTELUKAST SODIUM
     Indication: Asthma
  3. MELOXICAM [Concomitant]
     Active Substance: MELOXICAM
  4. albuterol HFA (proair) [Concomitant]
  5. BACLOFEN [Concomitant]
     Active Substance: BACLOFEN
  6. ESCITALOPRAM [Concomitant]
     Active Substance: ESCITALOPRAM OXALATE
  7. FLUTICASONE [Concomitant]
     Active Substance: FLUTICASONE
  8. CYCLOBENZAPRINE [Concomitant]
     Active Substance: CYCLOBENZAPRINE
  9. one a day women^s vitamin [Concomitant]
  10. iron patch [Concomitant]

REACTIONS (7)
  - Paranoia [None]
  - Anxiety [None]
  - Hallucination [None]
  - Intrusive thoughts [None]
  - Agitation [None]
  - Suicidal ideation [None]
  - Intentional self-injury [None]

NARRATIVE: CASE EVENT DATE: 20231020
